FAERS Safety Report 25317279 (Version 2)
Quarter: 2025Q3

REPORT INFORMATION
  Report Type: Spontaneous
  Country: US (occurrence: US)
  Receive Date: 20250515
  Receipt Date: 20250714
  Transmission Date: 20251021
  Serious: Yes (Life-Threatening, Other)
  Sender: ALEXION PHARMACEUTICALS
  Company Number: US-AstraZeneca-CH-00868057A

PATIENT
  Age: 47 Year
  Sex: Female
  Weight: 62.585 kg

DRUGS (1)
  1. SYMBICORT [Suspect]
     Active Substance: BUDESONIDE\FORMOTEROL FUMARATE DIHYDRATE

REACTIONS (9)
  - Anaphylactic shock [Recovering/Resolving]
  - Food allergy [Unknown]
  - Inappropriate schedule of product administration [Unknown]
  - Oral discomfort [Recovering/Resolving]
  - Stomatitis [Unknown]
  - Hypersensitivity [Recovered/Resolved with Sequelae]
  - Pharyngeal swelling [Unknown]
  - Arthropod bite [Unknown]
  - Hypotension [Unknown]

NARRATIVE: CASE EVENT DATE: 20250415
